FAERS Safety Report 11389668 (Version 1)
Quarter: 2015Q3

REPORT INFORMATION
  Report Type: Spontaneous
  Country: US (occurrence: US)
  Receive Date: 20150817
  Receipt Date: 20150817
  Transmission Date: 20151125
  Serious: No
  Sender: FDA-Public Use
  Company Number: US-CELGENEUS-163-20785-10050245

PATIENT
  Sex: Male

DRUGS (8)
  1. THALOMID [Suspect]
     Active Substance: THALIDOMIDE
     Indication: PLASMA CELL MYELOMA
     Route: 048
     Dates: start: 200907, end: 20090820
  2. THALOMID [Suspect]
     Active Substance: THALIDOMIDE
     Route: 048
     Dates: start: 200906
  3. THALOMID [Suspect]
     Active Substance: THALIDOMIDE
     Dosage: 50MG - 100MG
     Route: 048
     Dates: start: 200707
  4. THALOMID [Suspect]
     Active Substance: THALIDOMIDE
     Route: 048
     Dates: start: 20060720
  5. THALOMID [Suspect]
     Active Substance: THALIDOMIDE
     Route: 048
     Dates: start: 200905
  6. THALOMID [Suspect]
     Active Substance: THALIDOMIDE
     Dosage: 50MG - 150MG
     Route: 048
     Dates: start: 200803
  7. DEXAMETHASONE. [Concomitant]
     Active Substance: DEXAMETHASONE
     Indication: PLASMA CELL MYELOMA
     Route: 065
     Dates: start: 20120223, end: 20130625
  8. THALOMID [Suspect]
     Active Substance: THALIDOMIDE
     Route: 048
     Dates: start: 200701

REACTIONS (3)
  - Cognitive disorder [Unknown]
  - Drug ineffective [Unknown]
  - Neuropathy peripheral [Unknown]
